FAERS Safety Report 6634541-3 (Version None)
Quarter: 2010Q1

REPORT INFORMATION
  Report Type: 
  Country: None (occurrence: None)
  Receive Date: 20100312
  Receipt Date: 20100312
  Transmission Date: 20100710
  Serious: No
  Sender: FDA-Public Use
  Company Number: None

PATIENT
  Age: 69 Year
  Sex: Female
  Weight: 97.5234 kg

DRUGS (1)
  1. SYMBICORT [Suspect]
     Indication: WHEEZING
     Dosage: 2 PUFFS 2X DAY
     Dates: start: 20090701, end: 20091031

REACTIONS (3)
  - ARTHRALGIA [None]
  - MUSCLE SPASMS [None]
  - MYALGIA [None]
